FAERS Safety Report 8464870-2 (Version None)
Quarter: 2012Q2

REPORT INFORMATION
  Report Type: 
  Country: None (occurrence: None)
  Receive Date: 20120626
  Receipt Date: 20120615
  Transmission Date: 20120825
  Serious: Yes (Hospitalization)
  Sender: FDA-Public Use
  Company Number: US-ELI_LILLY_AND_COMPANY-US201206005996

PATIENT
  Sex: Male

DRUGS (4)
  1. ANTIBIOTICS [Concomitant]
  2. HUMULIN R [Suspect]
     Indication: DIABETES MELLITUS
     Dosage: UNK, PRN
  3. LEVEMIR [Concomitant]
  4. PREDNISONE TAB [Concomitant]

REACTIONS (4)
  - CHEMOTHERAPY [None]
  - BLOOD GLUCOSE FLUCTUATION [None]
  - INCORRECT STORAGE OF DRUG [None]
  - DRUG INEFFECTIVE [None]
